FAERS Safety Report 8239476-0 (Version None)
Quarter: 2012Q1

REPORT INFORMATION
  Report Type: 
  Country: None (occurrence: None)
  Receive Date: 20120328
  Receipt Date: 20120325
  Transmission Date: 20120608
  Serious: No
  Sender: FDA-Public Use
  Company Number: US-PFIZER INC-2012076304

PATIENT
  Age: 45 Year
  Sex: Female
  Weight: 72.562 kg

DRUGS (1)
  1. PREMPHASE (PREMARIN;CYCRIN 14/14) [Suspect]
     Dosage: 0.625/5 MG, DAILY
     Route: 048
     Dates: start: 20120323, end: 20120325

REACTIONS (3)
  - PALPITATIONS [None]
  - RASH GENERALISED [None]
  - HYPERHIDROSIS [None]
